FAERS Safety Report 8264283-2 (Version None)
Quarter: 2012Q2

REPORT INFORMATION
  Report Type: 
  Country: None (occurrence: None)
  Receive Date: 20120406
  Receipt Date: 20120330
  Transmission Date: 20120825
  Serious: No
  Sender: FDA-Public Use
  Company Number: US-PFIZER INC-2012081914

PATIENT
  Sex: Female
  Weight: 72.562 kg

DRUGS (7)
  1. TRAMADOL [Concomitant]
     Dosage: UNK
  2. XANAX [Concomitant]
     Dosage: UNK
  3. NEURONTIN [Suspect]
     Indication: FIBROMYALGIA
     Dosage: 300 MG, 3X/DAY
     Dates: start: 20100101
  4. IBUPROFEN [Concomitant]
     Dosage: 800 MG, UNK
  5. PROZAC [Concomitant]
     Dosage: UNK
  6. VICODIN [Concomitant]
     Dosage: UNK
  7. PROVIGIL [Concomitant]
     Dosage: UNK

REACTIONS (3)
  - PAIN [None]
  - SOMNOLENCE [None]
  - DRUG INEFFECTIVE [None]
